FAERS Safety Report 6976323-9 (Version None)
Quarter: 2010Q3

REPORT INFORMATION
  Report Type: 
  Country: None (occurrence: None)
  Receive Date: 20100910
  Receipt Date: 20100831
  Transmission Date: 20110219
  Serious: Yes (Other)
  Sender: FDA-Public Use
  Company Number: US-PFIZER INC-2010110419

PATIENT
  Sex: Male
  Weight: 86.168 kg

DRUGS (4)
  1. CELEBREX [Suspect]
     Indication: ARTHROPATHY
     Dosage: 100 MG, DAILY
     Route: 048
     Dates: start: 19980101
  2. BENICAR [Concomitant]
     Dosage: UNK
  3. PAXIL [Concomitant]
     Dosage: 20 MG, UNK
  4. WELLBUTRIN [Concomitant]
     Dosage: UNK

REACTIONS (1)
  - COELIAC DISEASE [None]
